FAERS Safety Report 18718759 (Version 2)
Quarter: 2021Q1

REPORT INFORMATION
  Report Type: Spontaneous
  Country: LV (occurrence: LV)
  Receive Date: 20210108
  Receipt Date: 20210209
  Transmission Date: 20210419
  Serious: Yes (Hospitalization, Other)
  Sender: FDA-Public Use
  Company Number: LV-TEVA-2020-LV-1865832

PATIENT
  Age: 51 Year
  Sex: Female

DRUGS (24)
  1. VINCRISTINE [Suspect]
     Active Substance: VINCRISTINE
     Indication: NON-HODGKIN^S LYMPHOMA STAGE III
     Dosage: ON DAY 2 (R?CVP REGIMEN)
     Route: 065
     Dates: start: 201512
  2. RITUXIMAB. [Suspect]
     Active Substance: RITUXIMAB
     Indication: NON-HODGKIN^S LYMPHOMA STAGE III
     Dosage: ON DAY 1 (R?CVP REGIMEN)
     Route: 065
     Dates: start: 201512
  3. CYCLOPHOSPHAMIDE. [Suspect]
     Active Substance: CYCLOPHOSPHAMIDE
     Indication: NON-HODGKIN^S LYMPHOMA STAGE III
     Dosage: ON DAY 2 (R?CHOP REGIMEN)
     Route: 065
  4. MELPHALAN. [Suspect]
     Active Substance: MELPHALAN
     Indication: BONE MARROW CONDITIONING REGIMEN
     Dosage: ON DAY ?1 (R?BEAM REGIMEN)
     Route: 065
     Dates: start: 201712
  5. CISPLATIN. [Suspect]
     Active Substance: CISPLATIN
     Indication: ABDOMINAL LYMPHADENOPATHY
  6. RITUXIMAB. [Suspect]
     Active Substance: RITUXIMAB
     Indication: ABDOMINAL LYMPHADENOPATHY
     Dosage: ON DAY 1 (R?CHOP REGIMEN)
     Route: 065
  7. CYCLOPHOSPHAMIDE. [Suspect]
     Active Substance: CYCLOPHOSPHAMIDE
     Indication: NON-HODGKIN^S LYMPHOMA STAGE III
     Dosage: ON DAY 2 (R?CVP REGIMEN)
     Route: 065
     Dates: start: 201512
  8. DEXAMETHASONE. [Suspect]
     Active Substance: DEXAMETHASONE
     Indication: LYMPHADENOPATHY
     Dosage: ON DAY 1?4 (R?DHAP REGIMEN)
     Route: 065
     Dates: start: 2017
  9. DOXORUBICIN [Suspect]
     Active Substance: DOXORUBICIN
     Indication: NON-HODGKIN^S LYMPHOMA STAGE III
     Dosage: ON DAY 2 (R?CHOP REGIMEN)
     Route: 065
  10. VINCRISTINE [Suspect]
     Active Substance: VINCRISTINE
     Indication: NON-HODGKIN^S LYMPHOMA STAGE III
     Dosage: ON DAY 2 (R?CHOP REGIMEN)
     Route: 065
  11. RITUXIMAB. [Suspect]
     Active Substance: RITUXIMAB
     Dosage: ON DAY 1 (R?B REGIMEN; RECEIVED 6 COURSES)
     Route: 042
     Dates: start: 201809
  12. PREDNISONE. [Suspect]
     Active Substance: PREDNISONE
     Indication: NON-HODGKIN^S LYMPHOMA STAGE III
     Dosage: ON DAY 2?6 (R?CHOP REGIMEN)
     Route: 065
  13. CYTARABINE. [Suspect]
     Active Substance: CYTARABINE
     Indication: ABDOMINAL LYMPHADENOPATHY
  14. RITUXIMAB. [Suspect]
     Active Substance: RITUXIMAB
     Indication: BONE MARROW CONDITIONING REGIMEN
     Dosage: ON DAY ?7 (R?BEAM REGIMEN)
     Route: 065
     Dates: start: 201712
  15. BENDAMUSTINE [Suspect]
     Active Substance: BENDAMUSTINE
     Route: 065
     Dates: start: 201809
  16. DEXAMETHASONE. [Suspect]
     Active Substance: DEXAMETHASONE
     Indication: ABDOMINAL LYMPHADENOPATHY
  17. FILGRASTIM [Concomitant]
     Active Substance: FILGRASTIM
     Indication: PRODUCT USED FOR UNKNOWN INDICATION
     Dosage: 10 UG/KG DAILY; RECEIVED 6 COURSES
     Route: 065
     Dates: start: 2017
  18. CISPLATIN. [Suspect]
     Active Substance: CISPLATIN
     Indication: LYMPHADENOPATHY
     Dosage: ON DAY 1 (R?DHAP REGIMEN)
     Route: 065
     Dates: start: 2017
  19. RITUXIMAB. [Suspect]
     Active Substance: RITUXIMAB
     Indication: LYMPHADENOPATHY
     Dosage: ON DAY 1 (R?DHAP REGIMEN)
     Route: 065
     Dates: start: 2017
  20. CYTARABINE. [Suspect]
     Active Substance: CYTARABINE
     Indication: BONE MARROW CONDITIONING REGIMEN
     Dosage: ON DAYS ?5 TO ?2 (R?BEAM REGIMEN)
     Route: 065
     Dates: start: 201712
  21. CARMUSTINE. [Suspect]
     Active Substance: CARMUSTINE
     Indication: BONE MARROW CONDITIONING REGIMEN
     Dosage: ON DAY ?6 (R?BEAM REGIMEN)
     Route: 065
     Dates: start: 201712
  22. BENDAMUSTINE [Suspect]
     Active Substance: BENDAMUSTINE
     Indication: NON-HODGKIN^S LYMPHOMA STAGE III
     Dosage: ON DAYS 1 AND 2 (R?B REGIMEN)
     Route: 065
     Dates: start: 201809
  23. ETOPOSIDE. [Suspect]
     Active Substance: ETOPOSIDE
     Indication: BONE MARROW CONDITIONING REGIMEN
     Dosage: ON DAY ?5 TO ?2 (R?BEAM REGIMEN)
     Route: 065
     Dates: start: 201712
  24. CYTARABINE. [Suspect]
     Active Substance: CYTARABINE
     Indication: LYMPHADENOPATHY
     Dosage: ON DAY 3 (R?DHAP REGIMEN)
     Route: 065
     Dates: start: 2017

REACTIONS (6)
  - JC virus infection [Not Recovered/Not Resolved]
  - Human herpesvirus 6 infection [Unknown]
  - Progressive multifocal leukoencephalopathy [Not Recovered/Not Resolved]
  - Thrombocytopenia [Unknown]
  - Human herpesvirus 7 infection [Unknown]
  - Herpes zoster [Unknown]

NARRATIVE: CASE EVENT DATE: 2017
